FAERS Safety Report 4885367-2 (Version None)
Quarter: 2005Q4

REPORT INFORMATION
  Report Type: 
  Country: None (occurrence: None)
  Receive Date: 20051222
  Receipt Date: 20050415
  Transmission Date: 20060501
  Serious: Yes (Other)
  Sender: FDA-Public Use
  Company Number: 402394

PATIENT
  Age: 57 Year
  Sex: Male
  Weight: 95.3 kg

DRUGS (1)
  1. TICLID [Suspect]
     Indication: CORONARY ARTERY DISEASE
     Dosage: 2 PER DAY ORAL
     Route: 048
     Dates: start: 20040819, end: 20050315

REACTIONS (1)
  - EOSINOPHILIA [None]
